FAERS Safety Report 25349635 (Version 2)
Quarter: 2025Q3

REPORT INFORMATION
  Report Type: Report from Study
  Country: JP (occurrence: JP)
  Receive Date: 20250522
  Receipt Date: 20250809
  Transmission Date: 20251020
  Serious: Yes (Life-Threatening, Hospitalization, Other)
  Sender: ALEXION PHARMACEUTICALS
  Company Number: JP-ASTRAZENECA-230034262_013120_P_1

PATIENT
  Age: 76 Year
  Sex: Male
  Weight: 54 kg

DRUGS (20)
  1. TREMELIMUMAB [Suspect]
     Active Substance: TREMELIMUMAB
     Indication: Hepatocellular carcinoma
     Dosage: 300 MILLIGRAM, Q4W
     Dates: start: 20230410, end: 20230410
  2. DURVALUMAB [Suspect]
     Active Substance: DURVALUMAB
     Indication: Hepatocellular carcinoma
     Dosage: 1500 MILLIGRAM, UNK, FREQUENCY: Q4WK
     Dates: start: 20230410, end: 20230410
  3. DURVALUMAB [Suspect]
     Active Substance: DURVALUMAB
     Dosage: 1500 MILLIGRAM, UNK, FREQUENCY: Q4WK
     Dates: start: 20230614
  4. NEXIUM [Concomitant]
     Active Substance: ESOMEPRAZOLE MAGNESIUM
  5. PIOGLITAZONE [Concomitant]
     Active Substance: PIOGLITAZONE
  6. SITAGLIPTIN [Concomitant]
     Active Substance: SITAGLIPTIN
  7. SITAGLIPTIN [Concomitant]
     Active Substance: SITAGLIPTIN
  8. ATORVASTATIN [Concomitant]
     Active Substance: ATORVASTATIN
  9. ATORVASTATIN [Concomitant]
     Active Substance: ATORVASTATIN
  10. XARELTO [Concomitant]
     Active Substance: RIVAROXABAN
  11. XARELTO [Concomitant]
     Active Substance: RIVAROXABAN
  12. VOGLIBOSE [Concomitant]
     Active Substance: VOGLIBOSE
  13. SHAKUYAKUKANZOTO [Concomitant]
     Active Substance: HERBALS
  14. REBAMIPIDE [Concomitant]
     Active Substance: REBAMIPIDE
  15. REBAMIPIDE [Concomitant]
     Active Substance: REBAMIPIDE
  16. REBAMIPIDE [Concomitant]
     Active Substance: REBAMIPIDE
  17. RESCULA [Concomitant]
     Active Substance: UNOPROSTONE ISOPROPYL
  18. RESCULA [Concomitant]
     Active Substance: UNOPROSTONE ISOPROPYL
  19. PIOGLITAZONE [Concomitant]
     Active Substance: PIOGLITAZONE
  20. VOGLIBOSE [Concomitant]
     Active Substance: VOGLIBOSE

REACTIONS (6)
  - Immune-mediated enterocolitis [Recovering/Resolving]
  - Eczema [Recovering/Resolving]
  - Decreased appetite [Recovering/Resolving]
  - Malaise [Recovering/Resolving]
  - Hypothyroidism [Recovering/Resolving]
  - Off label use [Unknown]

NARRATIVE: CASE EVENT DATE: 20230422
